FAERS Safety Report 11315911 (Version 3)
Quarter: 2015Q3

REPORT INFORMATION
  Report Type: Spontaneous
  Country: US (occurrence: None)
  Receive Date: 20150724
  Receipt Date: 20150824
  Transmission Date: 20151125
  Serious: Yes (Hospitalization)
  Sender: FDA-Public Use
  Company Number: 2015SMT00186

PATIENT
  Age: 36 Year
  Sex: Male
  Weight: 128.8 kg

DRUGS (5)
  1. HYDROCHLOROTHIAZIDE. [Concomitant]
     Active Substance: HYDROCHLOROTHIAZIDE
  2. INSULIN PUMP [Concomitant]
     Active Substance: INSULIN NOS
  3. LISINOPRIL. [Concomitant]
     Active Substance: LISINOPRIL
  4. 2-3 ANTIBIOTICS (UNSPECIFIED) [Concomitant]
  5. REGRANEX [Suspect]
     Active Substance: BECAPLERMIN
     Indication: DIABETIC ULCER
     Dosage: UNK UNK, 1X/DAY, TOPICAL
     Route: 061
     Dates: start: 201506, end: 201507

REACTIONS (5)
  - Toe amputation [None]
  - Constipation [None]
  - Nausea [None]
  - Osteomyelitis [None]
  - Diabetic neuropathy [None]

NARRATIVE: CASE EVENT DATE: 20150710
